FAERS Safety Report 12639861 (Version 1)
Quarter: 2016Q3

REPORT INFORMATION
  Report Type: Spontaneous
  Country: US (occurrence: US)
  Receive Date: 20160810
  Receipt Date: 20160810
  Transmission Date: 20161109
  Serious: No
  Sender: FDA-Public Use
  Company Number: US-BAYER-2016-146049

PATIENT
  Age: 80 Year
  Sex: Male
  Weight: 81.63 kg

DRUGS (1)
  1. LOTRIMIN ULTRA ANTIFUNGAL [Suspect]
     Active Substance: BUTENAFINE HYDROCHLORIDE
     Indication: ONYCHOMYCOSIS
     Dosage: 1 DF, QD
     Route: 061
     Dates: start: 20160725

REACTIONS (2)
  - Circumstance or information capable of leading to medication error [None]
  - Intercepted medication error [None]

NARRATIVE: CASE EVENT DATE: 201607
